FAERS Safety Report 6480893-7 (Version None)
Quarter: 2009Q4

REPORT INFORMATION
  Report Type: 
  Country: None (occurrence: None)
  Receive Date: 20091208
  Receipt Date: 20091130
  Transmission Date: 20100525
  Serious: Yes (Hospitalization)
  Sender: FDA-Public Use
  Company Number: PHHO2009IT14940

PATIENT
  Sex: Male
  Weight: 83 kg

DRUGS (3)
  1. CERTICAN [Suspect]
     Indication: RENAL TRANSPLANT
     Dosage: 3MG
     Route: 048
     Dates: start: 20091112, end: 20091126
  2. NEORAL [Suspect]
     Indication: RENAL TRANSPLANT
     Dosage: 225MG/DAILY
     Route: 048
     Dates: start: 20091112, end: 20091126
  3. STEROIDS NOS [Suspect]

REACTIONS (2)
  - BLOOD CREATININE INCREASED [None]
  - KIDNEY TRANSPLANT REJECTION [None]
